FAERS Safety Report 25493148 (Version 1)
Quarter: 2025Q2

REPORT INFORMATION
  Report Type: Spontaneous
  Country: IN (occurrence: IN)
  Receive Date: 20250630
  Receipt Date: 20250630
  Transmission Date: 20250717
  Serious: Yes (Other)
  Sender: MYLAN
  Company Number: IN-MYLANLABS-2025M1053749

PATIENT
  Age: 24 Year
  Sex: Female

DRUGS (3)
  1. METHOTREXATE [Suspect]
     Active Substance: METHOTREXATE
     Indication: Gestational trophoblastic tumour
     Dosage: 1 MILLIGRAM/KILOGRAM, BIWEEKLY (ON DAY 1, 3, 5, 7)
     Dates: start: 2021
  2. CAPECITABINE [Suspect]
     Active Substance: CAPECITABINE
     Indication: Gestational trophoblastic tumour
     Dosage: 1000 MILLIGRAM/SQ. METER, BID (FOR 14 DAYS OF 21 DAY CYCLE)
     Dates: start: 202106, end: 202308
  3. LEUCOVORIN [Suspect]
     Active Substance: LEUCOVORIN\LEUCOVORIN CALCIUM
     Indication: Gestational trophoblastic tumour
     Dosage: UNK, BIWEEKLY (ON DAYS 2, 4, 6, 8)
     Dates: start: 2021

REACTIONS (2)
  - Drug ineffective [Unknown]
  - Palmar-plantar erythrodysaesthesia syndrome [Recovering/Resolving]

NARRATIVE: CASE EVENT DATE: 20210101
